FAERS Safety Report 19003618 (Version 1)
Quarter: 2021Q1

REPORT INFORMATION
  Report Type: Report from Study
  Country: FR (occurrence: FR)
  Receive Date: 20210312
  Receipt Date: 20210312
  Transmission Date: 20210420
  Serious: Yes (Other)
  Sender: FDA-Public Use
  Company Number: FR-DSJP-DSE-2021-104660

PATIENT
  Age: 46 Year
  Sex: Female
  Weight: 71 kg

DRUGS (2)
  1. ENHERTU [Suspect]
     Active Substance: FAM-TRASTUZUMAB DERUXTECAN-NXKI
     Indication: HER2 POSITIVE BREAST CANCER
     Dosage: 390 MG, CYCLIC (ONCE PER 21 DAY CYCLE)
     Route: 042
     Dates: start: 20200820, end: 20200820
  2. ENHERTU [Suspect]
     Active Substance: FAM-TRASTUZUMAB DERUXTECAN-NXKI
     Dosage: 1 DF (DOSE REDUCTION OF 80 %), CYCLIC (ONCE PER 21 DAY CYCLE)
     Route: 042
     Dates: start: 20201223, end: 20201223

REACTIONS (3)
  - Neutropenia [Recovering/Resolving]
  - Hepatocellular injury [Not Recovered/Not Resolved]
  - Asthenia [Recovered/Resolved]

NARRATIVE: CASE EVENT DATE: 20200820
